FAERS Safety Report 7644693-4 (Version None)
Quarter: 2011Q3

REPORT INFORMATION
  Report Type: 
  Country: None (occurrence: None)
  Receive Date: 20110725
  Receipt Date: 20110711
  Transmission Date: 20111222
  Serious: Yes (Other)
  Sender: FDA-Public Use
  Company Number: 961793

PATIENT
  Age: 53 Year
  Sex: Male
  Weight: 64 kg

DRUGS (6)
  1. SOLU-MEDROL [Concomitant]
  2. (ZOPHREN /00955301/) [Concomitant]
  3. OXALIPLATIN [Suspect]
     Indication: COLON CANCER
     Dosage: 85 MG MILLIGRAM(S) INTRAVENOUS DRIP
     Route: 041
  4. LEUCOVORIN CALCIUM [Concomitant]
  5. POLARAMINE [Concomitant]
  6. (CALCIUM MAGNESIUM) [Concomitant]

REACTIONS (2)
  - VISION BLURRED [None]
  - ERYTHEMA [None]
